FAERS Safety Report 12512004 (Version 2)
Quarter: 2016Q3

REPORT INFORMATION
  Report Type: Spontaneous
  Country: US (occurrence: US)
  Receive Date: 20160630
  Receipt Date: 20160914
  Transmission Date: 20161109
  Serious: Yes (Hospitalization, Other)
  Sender: FDA-Public Use
  Company Number: US-JNJFOC-20160523499

PATIENT
  Age: 55 Year

DRUGS (2)
  1. XARELTO [Suspect]
     Active Substance: RIVAROXABAN
     Indication: PULMONARY EMBOLISM
     Route: 048
     Dates: start: 20130605, end: 20130928
  2. XARELTO [Suspect]
     Active Substance: RIVAROXABAN
     Indication: PULMONARY EMBOLISM
     Route: 048
     Dates: start: 2013, end: 201312

REACTIONS (5)
  - Vomiting [Unknown]
  - Haematemesis [Unknown]
  - Gastrointestinal haemorrhage [Unknown]
  - Melaena [Unknown]
  - Haemoptysis [Unknown]

NARRATIVE: CASE EVENT DATE: 20130521
